FAERS Safety Report 18763145 (Version 2)
Quarter: 2021Q1

REPORT INFORMATION
  Report Type: Spontaneous
  Country: US (occurrence: US)
  Receive Date: 20210120
  Receipt Date: 20210201
  Transmission Date: 20210419
  Serious: No
  Sender: FDA-Public Use
  Company Number: US-PFIZER INC-2021026472

PATIENT
  Age: 75 Year
  Sex: Male
  Weight: 106.59 kg

DRUGS (1)
  1. PHENELZINE SULFATE. [Suspect]
     Active Substance: PHENELZINE SULFATE
     Dosage: UNK

REACTIONS (1)
  - Drug ineffective [Unknown]
